FAERS Safety Report 5370230-3 (Version None)
Quarter: 2007Q2

REPORT INFORMATION
  Report Type: 
  Country: None (occurrence: None)
  Receive Date: 20070626
  Receipt Date: 20070620
  Transmission Date: 20071010
  Serious: Yes (Hospitalization)
  Sender: FDA-Public Use
  Company Number: BE-AMGEN-US223924

PATIENT
  Age: 59 Year
  Sex: Male
  Weight: 50 kg

DRUGS (1)
  1. ENBREL [Suspect]
     Indication: DRUG USE FOR UNKNOWN INDICATION
     Dosage: 25 MG
     Route: 058
     Dates: start: 20070402

REACTIONS (1)
  - SYNCOPE VASOVAGAL [None]
